FAERS Safety Report 15290729 (Version 2)
Quarter: 2018Q4

REPORT INFORMATION
  Report Type: Spontaneous
  Country: FR (occurrence: FR)
  Receive Date: 20180817
  Receipt Date: 20181109
  Transmission Date: 20190204
  Serious: Yes (Hospitalization)
  Sender: FDA-Public Use
  Company Number: FR-PFIZER INC-2018331260

PATIENT
  Age: 32 Year
  Sex: Female

DRUGS (8)
  1. PIPERACILLIN AND TAZOBACTAM [Suspect]
     Active Substance: PIPERACILLIN SODIUM\TAZOBACTAM SODIUM
     Indication: BACTERIAL INFECTION
     Dosage: 12 GRAM DAILY;
     Route: 041
     Dates: start: 20180619, end: 20180625
  2. ROVAMYCINE [Suspect]
     Active Substance: SPIRAMYCIN
     Indication: PNEUMOCYSTIS JIROVECII PNEUMONIA
     Dosage: 1.5 KU DAILY;
     Route: 041
     Dates: start: 20180618, end: 20180625
  3. LYSODREN [Concomitant]
     Active Substance: MITOTANE
     Indication: CUSHING^S SYNDROME
     Dosage: 3000 MG, 1X/DAY
     Route: 048
     Dates: start: 20180621, end: 20180625
  4. BACTRIM [Suspect]
     Active Substance: SULFAMETHOXAZOLE\TRIMETHOPRIM
     Indication: PNEUMOCYSTIS JIROVECII PNEUMONIA
     Dosage: 6400 MILLIGRAM DAILY;
     Route: 048
     Dates: start: 20180618, end: 20180625
  5. CISPLATIN. [Suspect]
     Active Substance: CISPLATIN
     Indication: ADRENAL GLAND CANCER
     Dosage: UNK
     Route: 041
     Dates: start: 20180621, end: 20180623
  6. EMEND [Suspect]
     Active Substance: APREPITANT
     Indication: PROPHYLAXIS OF NAUSEA AND VOMITING
     Dosage: 80 MG, 1X/DAY
     Route: 048
     Dates: start: 20180621, end: 20180627
  7. NIVESTIM [Concomitant]
     Active Substance: FILGRASTIM
     Dosage: 48 KIU, DAILY;48 MU/0.5 ML, INJECTABLE/INFUSION SOLUTION
     Route: 058
     Dates: start: 20180625, end: 20180628
  8. METOPIRONE [Concomitant]
     Active Substance: METYRAPONE
     Indication: CUSHING^S SYNDROME
     Dosage: 750 MG, 1X/DAY
     Dates: start: 20180619, end: 20180703

REACTIONS (1)
  - Hepatocellular injury [Recovered/Resolved]

NARRATIVE: CASE EVENT DATE: 20180623
